FAERS Safety Report 26169630 (Version 1)
Quarter: 2025Q4

REPORT INFORMATION
  Report Type: Spontaneous
  Country: EU (occurrence: EU)
  Receive Date: 20251217
  Receipt Date: 20251217
  Transmission Date: 20260118
  Serious: Yes (Life-Threatening, Other)
  Sender: HIKMA
  Company Number: None

PATIENT
  Sex: Female

DRUGS (2)
  1. ATRACURIUM [Suspect]
     Active Substance: ATRACURIUM
     Indication: Wrong product administered
     Dosage: 1 DOSAGE FORM, SINGLE
     Route: 042
     Dates: start: 20250416, end: 20250416
  2. MIDAZOLAM [Suspect]
     Active Substance: MIDAZOLAM
     Indication: Light anaesthesia
     Dosage: UNK
     Route: 065

REACTIONS (2)
  - Respiratory distress [Recovered/Resolved]
  - Wrong product administered [Recovered/Resolved]

NARRATIVE: CASE EVENT DATE: 20250416
